FAERS Safety Report 8506887-5 (Version None)
Quarter: 2012Q3

REPORT INFORMATION
  Report Type: 
  Country: None (occurrence: None)
  Receive Date: 20120712
  Receipt Date: 20120710
  Transmission Date: 20120928
  Serious: Yes (Other)
  Sender: FDA-Public Use
  Company Number: US-BAYER-2012-068679

PATIENT
  Age: 53 Year
  Sex: Female

DRUGS (2)
  1. ULTRAVIST 150 [Suspect]
     Dosage: UNK
     Dates: start: 20120709, end: 20120709
  2. ULTRAVIST 150 [Suspect]
     Indication: COMPUTERISED TOMOGRAM ABDOMEN
     Dosage: 122 ML
     Dates: start: 20120709, end: 20120709

REACTIONS (7)
  - SPEECH DISORDER [None]
  - PERIORBITAL OEDEMA [None]
  - THROAT TIGHTNESS [None]
  - COUGH [None]
  - PHARYNGEAL OEDEMA [None]
  - SNEEZING [None]
  - ERYTHEMA [None]
